FAERS Safety Report 4599711-7 (Version None)
Quarter: 2005Q1

REPORT INFORMATION
  Report Type: 
  Country: None (occurrence: None)
  Receive Date: 20050307
  Receipt Date: 20050225
  Transmission Date: 20050727
  Serious: Yes (Hospitalization)
  Sender: FDA-Public Use
  Company Number: PHBS2005JP02933

PATIENT
  Age: 54 Year
  Sex: Male

DRUGS (2)
  1. SANDOSTATIN [Suspect]
     Dosage: 300 UG/DAY
     Route: 042
  2. DECADRON [Concomitant]
     Dosage: 3.3 ML/DAY
     Route: 048

REACTIONS (2)
  - NERVE DEGENERATION [None]
  - URINARY RETENTION [None]
